FAERS Safety Report 8931041 (Version 2)
Quarter: 2012Q4

REPORT INFORMATION
  Report Type: 
  Country: US (occurrence: US)
  Receive Date: 20121121
  Receipt Date: 20121212
  Transmission Date: 20130627
  Serious: Yes (Death)
  Sender: FDA-Public Use
  Company Number: US-ASTELLAS-1094188

PATIENT
  Sex: Male

DRUGS (1)
  1. TARCEVA [Suspect]
     Indication: GLOTTIS CARCINOMA
     Route: 065

REACTIONS (6)
  - Multi-organ failure [Fatal]
  - Infection [Fatal]
  - Anaemia [Fatal]
  - Hypoxia [Fatal]
  - Cachexia [Fatal]
  - Disease progression [Unknown]
